FAERS Safety Report 12855431 (Version 1)
Quarter: 2016Q4

REPORT INFORMATION
  Report Type: Report from Study
  Country: ES (occurrence: ES)
  Receive Date: 20161017
  Receipt Date: 20161017
  Transmission Date: 20170207
  Serious: Yes (Death, Hospitalization)
  Sender: FDA-Public Use
  Company Number: ES-B.I. PHARMACEUTICALS,INC./RIDGEFIELD-2014-BI-10376II

PATIENT
  Age: 71 Year
  Sex: Male
  Weight: 60 kg

DRUGS (17)
  1. METFORMINE [Concomitant]
     Active Substance: METFORMIN HYDROCHLORIDE
     Indication: DIABETES MELLITUS
     Route: 048
  2. PRIMPERAN [Concomitant]
     Active Substance: METOCLOPRAMIDE HYDROCHLORIDE
     Indication: PROPHYLAXIS
     Route: 042
     Dates: start: 20140313, end: 20140406
  3. BIBW 2992 [Suspect]
     Active Substance: AFATINIB
     Indication: LUNG ADENOCARCINOMA STAGE IV
     Route: 048
     Dates: start: 20140211, end: 20140306
  4. MINOCIN [Concomitant]
     Active Substance: MINOCYCLINE HYDROCHLORIDE
     Indication: RASH
     Route: 048
     Dates: start: 20140225, end: 20140313
  5. CIPROFLOXACINE [Concomitant]
     Active Substance: CIPROFLOXACIN
     Indication: ANTIBIOTIC THERAPY
     Route: 042
     Dates: start: 20140313, end: 20140318
  6. ASTUDAL [Concomitant]
     Indication: HYPERTENSION
     Route: 048
  7. ENALAPRIL [Concomitant]
     Active Substance: ENALAPRIL
     Route: 048
     Dates: end: 20140306
  8. ADIRO [Concomitant]
     Active Substance: ASPIRIN
     Indication: PROPHYLAXIS
     Route: 048
     Dates: end: 20140306
  9. OMEPRAZOL [Concomitant]
     Active Substance: OMEPRAZOLE
     Indication: PROPHYLAXIS
     Route: 048
     Dates: end: 20140404
  10. HIBOR [Concomitant]
     Active Substance: BEMIPARIN SODIUM
     Indication: PROPHYLAXIS
     Dosage: DAILY DOSE: 3500UL
     Route: 042
     Dates: start: 20140310, end: 20140328
  11. METFORMINE [Concomitant]
     Active Substance: METFORMIN HYDROCHLORIDE
     Route: 048
     Dates: end: 20140306
  12. ENALAPRIL [Concomitant]
     Active Substance: ENALAPRIL
     Indication: HYPERTENSION
     Route: 048
  13. OMEPRAZOL [Concomitant]
     Active Substance: OMEPRAZOLE
     Route: 048
     Dates: end: 20140306
  14. PLETAL [Concomitant]
     Active Substance: CILOSTAZOL
     Indication: ANALGESIC THERAPY
     Route: 048
  15. ROTEX [Concomitant]
     Active Substance: CAPSAICIN\MENTHOL\METHYL SALICYLATE
     Indication: RASH
     Route: 061
     Dates: start: 20140225, end: 20140401
  16. PIETEL [Concomitant]
     Indication: RASH
     Route: 061
     Dates: start: 20140225, end: 20140401
  17. MORPHINE [Concomitant]
     Active Substance: MORPHINE
     Indication: ANALGESIC THERAPY
     Route: 042
     Dates: start: 20140310, end: 20140406

REACTIONS (5)
  - Malignant neoplasm progression [Fatal]
  - Diarrhoea [Recovered/Resolved]
  - International normalised ratio increased [Recovered/Resolved]
  - Pneumonia [Unknown]
  - Renal failure [Recovered/Resolved]

NARRATIVE: CASE EVENT DATE: 20140301
